FAERS Safety Report 5636018-0 (Version None)
Quarter: 2008Q1

REPORT INFORMATION
  Report Type: 
  Country: None (occurrence: None)
  Receive Date: 20080225
  Receipt Date: 20080220
  Transmission Date: 20080703
  Serious: Yes (Life-Threatening)
  Sender: FDA-Public Use
  Company Number: JP-SP-2008-00311

PATIENT
  Age: 62 Year
  Sex: Male

DRUGS (6)
  1. IMMUCYST [Suspect]
     Indication: BLADDER CANCER
     Route: 043
     Dates: start: 20061023, end: 20061120
  2. TRIHEXYPHENIDYL HYDROCHLORIDE [Concomitant]
  3. PERGOLIDE MESYLATE [Concomitant]
  4. CARBIDOPA AND LEVODOPA [Concomitant]
  5. SODIUM PICOSULFATE [Concomitant]
     Dates: start: 20061023, end: 20061120
  6. MAGNESIUM OXIDE [Concomitant]

REACTIONS (1)
  - DISSEMINATED TUBERCULOSIS [None]
